FAERS Safety Report 4696749-6 (Version None)
Quarter: 2005Q2

REPORT INFORMATION
  Report Type: 
  Country: None (occurrence: None)
  Receive Date: 20050620
  Receipt Date: 20050608
  Transmission Date: 20051028
  Serious: Yes (Death, Hospitalization)
  Sender: FDA-Public Use
  Company Number: HQWYE303931DEC04

PATIENT
  Age: 3 Year
  Sex: Female
  Weight: 16.4 kg

DRUGS (1)
  1. CHILDREN'S ADVIL [Suspect]
     Indication: PYREXIA
     Dosage: ORAL
     Route: 048
     Dates: start: 20030301, end: 20030301

REACTIONS (18)
  - ANAEMIA [None]
  - ASPARTATE AMINOTRANSFERASE INCREASED [None]
  - CHEILITIS [None]
  - CIRCULATORY COLLAPSE [None]
  - CONJUNCTIVAL HYPERAEMIA [None]
  - EYELIDS PRURITUS [None]
  - GASTRIC ULCER [None]
  - HILAR LYMPHADENOPATHY [None]
  - LOSS OF CONSCIOUSNESS [None]
  - MULTI-ORGAN FAILURE [None]
  - OESOPHAGEAL ULCER [None]
  - OXYGEN SATURATION DECREASED [None]
  - PULMONARY CONGESTION [None]
  - SINUS TACHYCARDIA [None]
  - STEVENS-JOHNSON SYNDROME [None]
  - STOMATITIS [None]
  - TONGUE ULCERATION [None]
  - VAGINAL WALL CONGESTION [None]
